FAERS Safety Report 10678792 (Version 1)
Quarter: 2014Q4

REPORT INFORMATION
  Report Type: Spontaneous
  Country: US (occurrence: US)
  Receive Date: 20141229
  Receipt Date: 20141229
  Transmission Date: 20150529
  Serious: No
  Sender: FDA-Public Use
  Company Number: US-ASTRAZENECA-2014SE97274

PATIENT
  Sex: Male

DRUGS (10)
  1. CALCIUM [Concomitant]
     Active Substance: CALCIUM
     Dates: end: 201411
  2. KAOPECTATE REGULAR STRENGTH CHERRY FLAVOR [Concomitant]
     Active Substance: BISMUTH SUBSALICYLATE
     Indication: DIARRHOEA
  3. GENERIC FLOMA [Concomitant]
  4. AZO [Concomitant]
     Active Substance: PHENAZOPYRIDINE HYDROCHLORIDE
     Indication: URINARY TRACT INFECTION
  5. ANTIBIOTICS [Concomitant]
     Active Substance: UNSPECIFIED INGREDIENT
     Indication: URINARY TRACT INFECTION
  6. RADIATION [Concomitant]
     Active Substance: RADIATION THERAPY
     Indication: PROSTATE CANCER
     Dates: start: 201405, end: 2014
  7. ZOLADEX [Suspect]
     Active Substance: GOSERELIN ACETATE
     Indication: PROSTATE CANCER
     Route: 058
     Dates: start: 20140310
  8. TYLENOL PM [Concomitant]
     Active Substance: ACETAMINOPHEN\DIPHENHYDRAMINE
  9. POTASSIUM [Concomitant]
     Active Substance: POTASSIUM
  10. IMODIUM [Concomitant]
     Active Substance: LOPERAMIDE HYDROCHLORIDE
     Indication: DIARRHOEA

REACTIONS (16)
  - Urinary tract infection [Recovered/Resolved]
  - Arthralgia [Unknown]
  - Fluid retention [Unknown]
  - Dyspepsia [Unknown]
  - Peripheral swelling [Unknown]
  - Muscular weakness [Unknown]
  - Hypoacusis [Unknown]
  - Urinary retention [Unknown]
  - Insomnia [Unknown]
  - Diarrhoea [Unknown]
  - Bone pain [Unknown]
  - Myalgia [Unknown]
  - Fall [Unknown]
  - Urine odour abnormal [Unknown]
  - Weight increased [Unknown]
  - Dysuria [Unknown]

NARRATIVE: CASE EVENT DATE: 201405
